FAERS Safety Report 11331032 (Version 1)
Quarter: 2015Q3

REPORT INFORMATION
  Report Type: Spontaneous
  Country: US (occurrence: US)
  Receive Date: 20150803
  Receipt Date: 20150803
  Transmission Date: 20151125
  Serious: No
  Sender: FDA-Public Use
  Company Number: US-BAYER-2015-386300

PATIENT
  Age: 70 Year
  Sex: Female
  Weight: 93 kg

DRUGS (4)
  1. ALEVE [Suspect]
     Active Substance: NAPROXEN SODIUM
     Indication: ARTHRALGIA
     Dosage: 1 DF, BID
     Route: 048
     Dates: start: 201503
  2. CITRACAL [Concomitant]
     Active Substance: CALCIUM CITRATE
  3. BAYER LOW DOSE [Suspect]
     Active Substance: ASPIRIN
     Dosage: 1 DF, PRN
     Route: 048
  4. CENTRUM [Concomitant]
     Active Substance: VITAMINS

REACTIONS (4)
  - Anxiety [Not Recovered/Not Resolved]
  - Contusion [Unknown]
  - Claustrophobia [Not Recovered/Not Resolved]
  - Off label use [Unknown]

NARRATIVE: CASE EVENT DATE: 201503
